FAERS Safety Report 7408593-7 (Version None)
Quarter: 2011Q2

REPORT INFORMATION
  Report Type: 
  Country: None (occurrence: None)
  Receive Date: 20110404
  Receipt Date: 20110324
  Transmission Date: 20111010
  Serious: Yes (Other)
  Sender: FDA-Public Use
  Company Number: 20109726

PATIENT
  Sex: Male

DRUGS (1)
  1. LIORESAL [Suspect]
     Indication: MUSCLE SPASTICITY
     Dosage: INTRATHECAL
     Route: 037

REACTIONS (6)
  - DRUG WITHDRAWAL SYNDROME [None]
  - VITAL FUNCTIONS ABNORMAL [None]
  - POCKET EROSION [None]
  - IMPLANT SITE INFECTION [None]
  - STAPHYLOCOCCUS TEST POSITIVE [None]
  - WOUND DEHISCENCE [None]
